FAERS Safety Report 10219341 (Version 3)
Quarter: 2014Q2

REPORT INFORMATION
  Report Type: Report from Study
  Country: US (occurrence: US)
  Receive Date: 20140605
  Receipt Date: 20140623
  Transmission Date: 20141212
  Serious: Yes (Death)
  Sender: FDA-Public Use
  Company Number: US-ACTELION-A-US2013-88859

PATIENT
  Age: 60 Year
  Sex: Female

DRUGS (1)
  1. TRACLEER [Suspect]
     Indication: PULMONARY ARTERIAL HYPERTENSION
     Dosage: UNK
     Route: 048
     Dates: end: 20140522

REACTIONS (7)
  - Pulmonary arterial hypertension [Fatal]
  - Cardiac arrest [Fatal]
  - Dyspnoea exertional [Unknown]
  - Dyspnoea [Unknown]
  - Oedema peripheral [Unknown]
  - Liver function test abnormal [Unknown]
  - Epistaxis [Unknown]
